FAERS Safety Report 12602818 (Version 1)
Quarter: 2016Q3

REPORT INFORMATION
  Report Type: Spontaneous
  Country: US (occurrence: US)
  Receive Date: 20160728
  Receipt Date: 20160728
  Transmission Date: 20161109
  Serious: No
  Sender: FDA-Public Use
  Company Number: PHEH2016US018468

PATIENT
  Sex: Male

DRUGS (1)
  1. ENTRESTO [Suspect]
     Active Substance: SACUBITRIL\VALSARTAN
     Indication: HYPOTENSION
     Route: 065

REACTIONS (3)
  - Hypotension [Recovered/Resolved]
  - Product use issue [Unknown]
  - Dizziness [Recovered/Resolved]
